FAERS Safety Report 7376167-2 (Version None)
Quarter: 2011Q1

REPORT INFORMATION
  Report Type: 
  Country: None (occurrence: None)
  Receive Date: 20110325
  Receipt Date: 20110315
  Transmission Date: 20110831
  Serious: Yes (Other)
  Sender: FDA-Public Use
  Company Number: US-ROCHE-766282

PATIENT
  Sex: Male
  Weight: 116.1 kg

DRUGS (23)
  1. ACTEMRA [Suspect]
     Indication: RHEUMATOID ARTHRITIS
     Dosage: DOSE: 4MG/KG BATCH N0: B0012, B004 EXPIRATION DATE: FEB 2012
     Route: 042
     Dates: start: 20100816, end: 20100816
  2. ACTEMRA [Suspect]
     Dosage: BATCH NO: B0013 EXPIRATION DATE: FEB 2012
     Route: 042
     Dates: start: 20101012, end: 20101012
  3. PREDNISONE [Concomitant]
     Indication: RHEUMATOID ARTHRITIS
     Route: 048
     Dates: start: 20090901
  4. SULFASALAZINE [Concomitant]
     Indication: RHEUMATOID ARTHRITIS
     Route: 048
     Dates: start: 20100301
  5. ACTEMRA [Suspect]
     Dosage: BATCH NO: B0012, B004 EXPIRATION DATE: FEB 2012, SEP 2011
     Route: 042
     Dates: start: 20101203, end: 20101203
  6. ACTEMRA [Suspect]
     Dosage: DOSE: 4MG/KG BATCH NO: B0012 EXPIRATION DATE: FEB 2012
     Route: 042
     Dates: start: 20100914, end: 20100914
  7. ACTEMRA [Suspect]
     Dosage: BATCH NO: B0014 EXPIRATION DATE: MAY 2012
     Route: 042
     Dates: start: 20110127, end: 20110127
  8. CELEBREX [Concomitant]
     Route: 048
  9. ACTEMRA [Suspect]
     Dosage: BATCH NO: B0015 EXPIRATION DATE: MAY 2012
     Route: 042
     Dates: start: 20110224
  10. CRESTOR [Concomitant]
     Dosage: AT BEDTIME
  11. LEFLUNOMIDE [Concomitant]
     Indication: RHEUMATOID ARTHRITIS
     Route: 048
     Dates: start: 20100301
  12. ACTEMRA [Suspect]
     Dosage: BATCH NO: B0014 EXPIRATION DATE: MAY 2012
     Route: 042
     Dates: start: 20101230, end: 20101230
  13. LYRICA [Concomitant]
     Indication: FIBROMYALGIA
  14. LAMISIL [Concomitant]
  15. VOLTAREN [Concomitant]
     Route: 061
  16. ACTEMRA [Suspect]
     Dosage: BATCH N0: B0013, B004 EXPIRATION DATE: FEB 2012, SEP 2011
     Route: 042
     Dates: start: 20101108, end: 20101108
  17. CYMBALTA [Concomitant]
     Indication: FIBROMYALGIA
  18. SKELAXIN [Concomitant]
     Route: 048
  19. LASIX [Concomitant]
  20. FLOMAX [Concomitant]
  21. OXYCODONE HCL AND ACETAMINOPHEN [Concomitant]
     Indication: PAIN
     Dosage: FREQUENCY: AS NECESSARY
     Dates: start: 20090901
  22. FENTANYL-100 [Concomitant]
     Indication: PAIN
     Dosage: DOSE: EXTENDED RELEASE 50 UG/HOUR
     Route: 061
     Dates: start: 20100901
  23. PERCOCET [Concomitant]

REACTIONS (5)
  - DRY SKIN [None]
  - JOINT SWELLING [None]
  - DRUG INEFFECTIVE [None]
  - OSTEOARTHRITIS [None]
  - MENISCUS LESION [None]
